FAERS Safety Report 9478437 (Version 1)
Quarter: 2013Q3

REPORT INFORMATION
  Report Type: Spontaneous
  Country: CH (occurrence: CH)
  Receive Date: 20130827
  Receipt Date: 20130827
  Transmission Date: 20140515
  Serious: Yes (Other)
  Sender: FDA-Public Use
  Company Number: CH-ELI_LILLY_AND_COMPANY-CH201308006432

PATIENT
  Age: 31 Year
  Sex: Female

DRUGS (2)
  1. FLUCTINE [Suspect]
     Dosage: 20 MG, BID
     Route: 048
  2. NEOTIGASON [Suspect]
     Indication: PSORIASIS
     Dosage: 10 MG, QD
     Route: 048
     Dates: start: 201301, end: 20130608

REACTIONS (1)
  - Maternal exposure during pregnancy [Recovered/Resolved]
